FAERS Safety Report 21570818 (Version 2)
Quarter: 2022Q4

REPORT INFORMATION
  Report Type: Report from Study
  Country: MX (occurrence: MX)
  Receive Date: 20221109
  Receipt Date: 20221222
  Transmission Date: 20230113
  Serious: No
  Sender: FDA-Public Use
  Company Number: MX-002147023-NVSC2022MX250525

PATIENT
  Age: 13 Year
  Sex: Male
  Weight: 61 kg

DRUGS (5)
  1. OMNITROPE [Suspect]
     Active Substance: SOMATROPIN
     Indication: Precocious puberty
     Dosage: 2.8 MG, QD
     Route: 058
     Dates: start: 202103, end: 202105
  2. OMNITROPE [Suspect]
     Active Substance: SOMATROPIN
     Indication: Growth retardation
     Dosage: 2.8 MG, QD
     Route: 058
     Dates: start: 20221111
  3. LETROZOLE [Suspect]
     Active Substance: LETROZOLE
     Indication: Growth retardation
     Dosage: 2 DOSAGE FORM, QD (3 YEARS AGO)
     Route: 048
  4. LETROZOLE [Suspect]
     Active Substance: LETROZOLE
     Indication: Bone disorder
  5. LETROZOLE [Suspect]
     Active Substance: LETROZOLE
     Indication: Chondropathy

REACTIONS (8)
  - Epistaxis [Not Recovered/Not Resolved]
  - Influenza [Recovered/Resolved]
  - COVID-19 [Recovered/Resolved]
  - Immune system disorder [Recovered/Resolved]
  - Product prescribing error [Unknown]
  - Product use issue [Unknown]
  - Product use in unapproved indication [Unknown]
  - Prescribed overdose [Unknown]

NARRATIVE: CASE EVENT DATE: 20210301
